FAERS Safety Report 22161116 (Version 2)
Quarter: 2023Q2

REPORT INFORMATION
  Report Type: Report from Study
  Country: CA (occurrence: CA)
  Receive Date: 20230331
  Receipt Date: 20230530
  Transmission Date: 20230722
  Serious: Yes (Hospitalization, Other)
  Sender: FDA-Public Use
  Company Number: CA-TAKEDA-2023TUS032588

PATIENT
  Age: 63 Year
  Sex: Male

DRUGS (13)
  1. VEDOLIZUMAB [Suspect]
     Active Substance: VEDOLIZUMAB
     Indication: Crohn^s disease
     Dosage: 300 MILLIGRAM
     Route: 042
     Dates: start: 20160706
  2. VEDOLIZUMAB [Suspect]
     Active Substance: VEDOLIZUMAB
     Dosage: 300 MILLIGRAM, Q4WEEKS
     Route: 042
     Dates: start: 20170504
  3. VEDOLIZUMAB [Suspect]
     Active Substance: VEDOLIZUMAB
     Dosage: 300 MILLIGRAM, Q4WEEKS
     Route: 042
  4. PANTOPRAZOLE SODIUM [Suspect]
     Active Substance: PANTOPRAZOLE SODIUM
     Indication: Product used for unknown indication
     Dosage: UNK
     Route: 065
     Dates: start: 20160518, end: 20160601
  5. COZAAR [Concomitant]
     Active Substance: LOSARTAN POTASSIUM
     Dosage: 50 MILLIGRAM, QD
     Route: 048
  6. CIPROFLOXACIN HYDROCHLORIDE [Concomitant]
     Active Substance: CIPROFLOXACIN HYDROCHLORIDE
     Dosage: 5 MILLIGRAM, QD
     Route: 048
  7. AXIRON [Concomitant]
     Active Substance: TESTOSTERONE
     Dosage: 30 MILLIGRAM, QD
  8. PREDNISONE [Concomitant]
     Active Substance: PREDNISONE
     Dosage: 40 MILLIGRAM, QD
     Dates: start: 20160608
  9. BUDESONIDE [Concomitant]
     Active Substance: BUDESONIDE
     Dosage: 4.5 MILLIGRAM, QD
     Dates: start: 19970120
  10. ALLOPURINOL [Concomitant]
     Active Substance: ALLOPURINOL
     Dosage: 300 MILLIGRAM, QD
  11. LOSARTAN [Concomitant]
     Active Substance: LOSARTAN
     Dosage: 100 MILLIGRAM, QD
  12. METHOTREXATE [Concomitant]
     Active Substance: METHOTREXATE
     Dosage: 15 MILLIGRAM, 1/WEEK
  13. ENTOCORT [Concomitant]
     Active Substance: BUDESONIDE
     Dosage: UNK

REACTIONS (3)
  - Pneumonia [Recovering/Resolving]
  - Pneumothorax [Unknown]
  - Off label use [Unknown]

NARRATIVE: CASE EVENT DATE: 20170504
